FAERS Safety Report 18479897 (Version 1)
Quarter: 2020Q4

REPORT INFORMATION
  Report Type: Spontaneous
  Country: DE (occurrence: DE)
  Receive Date: 20201109
  Receipt Date: 20201109
  Transmission Date: 20210114
  Serious: Yes (Death, Other)
  Sender: FDA-Public Use
  Company Number: DE-MICRO LABS LIMITED-ML2020-03309

PATIENT
  Age: 35 Year
  Sex: Male

DRUGS (9)
  1. CAFFEINE CITRATE. [Suspect]
     Active Substance: CAFFEINE CITRATE
  2. PMA (PARA-METHOXYAMPHETAMINE) [Suspect]
     Active Substance: 4-METHOXYAMPHETAMINE
  3. ALCOHOL. [Suspect]
     Active Substance: ALCOHOL
  4. METHAMPHETAMINE [Suspect]
     Active Substance: METHAMPHETAMINE
  5. AMPHETAMINE [Suspect]
     Active Substance: AMPHETAMINE
  6. MDEA (METHYL DIETHANOLAMINE) [Suspect]
     Active Substance: METHYL DIETHANOLAMINE
  7. PMMA (PARAMETHOXYMETHAMPHETAMINE) [Suspect]
     Active Substance: 4-METHOXYMETHAMPHETAMINE
  8. MDMA (3,4 METHYLENEDIOXYMETHAMPHETAMINE) [Suspect]
     Active Substance: MIDOMAFETAMINE
  9. MDA (3,4-METHYLENEDIOXYAMPHETAMINE) [Suspect]
     Active Substance: TENAMFETAMINE

REACTIONS (2)
  - Toxicity to various agents [Fatal]
  - Drug abuse [Unknown]
